FAERS Safety Report 13963885 (Version 1)
Quarter: 2017Q3

REPORT INFORMATION
  Report Type: Spontaneous
  Country: IT (occurrence: IT)
  Receive Date: 20170913
  Receipt Date: 20170913
  Transmission Date: 20171128
  Serious: Yes (Hospitalization)
  Sender: FDA-Public Use
  Company Number: IT-ASTRAZENECA-2017SE91407

PATIENT
  Age: 53 Year
  Sex: Female

DRUGS (3)
  1. SEROQUEL [Suspect]
     Active Substance: QUETIAPINE FUMARATE
     Route: 048
     Dates: start: 20170831
  2. SEROQUEL [Suspect]
     Active Substance: QUETIAPINE FUMARATE
     Route: 048
     Dates: start: 20170831
  3. LARGACTIL [Suspect]
     Active Substance: CHLORPROMAZINE
     Route: 048
     Dates: start: 20170831

REACTIONS (2)
  - Hypotension [Unknown]
  - Respiratory failure [Unknown]

NARRATIVE: CASE EVENT DATE: 20170901
